FAERS Safety Report 9320239 (Version 3)
Quarter: 2013Q4

REPORT INFORMATION
  Report Type: Spontaneous
  Country: CA (occurrence: CA)
  Receive Date: 20130530
  Receipt Date: 20131120
  Transmission Date: 20140711
  Serious: Yes (Hospitalization, Other)
  Sender: FDA-Public Use
  Company Number: CA-BAXTER-2013BAX019660

PATIENT
  Age: 59 Year
  Sex: Female

DRUGS (7)
  1. DIANEAL PD4 SOLUTION WITH 1.5% DEXTROSE AND 2.5 MEQ/L CALCIUM [Suspect]
     Indication: PERITONEAL DIALYSIS
     Route: 033
     Dates: start: 20120328
  2. DIANEAL PD4 SOLUTION WITH 2.5% DEXTROSE AND 2.5 MEQ/L CALCIUM [Suspect]
     Indication: PERITONEAL DIALYSIS
     Route: 033
     Dates: start: 20120328
  3. DIANEAL PD4 SOLUTION WITH 4.25% DEXTROSE AND 2.5 MEQ/L CALCIUM [Suspect]
     Indication: PERITONEAL DIALYSIS
     Route: 033
     Dates: start: 20120328
  4. DIANEAL PD 101 SOLUTION WITH 0.5% DEXTROSE [Suspect]
     Indication: PERITONEAL DIALYSIS
     Route: 033
     Dates: start: 20120328
  5. EXTRANEAL [Suspect]
     Indication: PERITONEAL DIALYSIS
     Route: 033
     Dates: start: 20120328
  6. MORPHINE [Concomitant]
     Indication: PROCEDURAL PAIN
     Route: 065
  7. TYLENOL # 3 [Concomitant]
     Indication: PROCEDURAL PAIN
     Route: 065

REACTIONS (6)
  - Bone deformity [Unknown]
  - Impaired healing [Recovered/Resolved]
  - Peritonitis [Recovered/Resolved]
  - Peritonitis [Recovered/Resolved]
  - Staphylococcal infection [Unknown]
  - Blood potassium increased [Unknown]
